FAERS Safety Report 7502520-X (Version None)
Quarter: 2011Q2

REPORT INFORMATION
  Report Type: 
  Country: None (occurrence: None)
  Receive Date: 20110517
  Receipt Date: 20110502
  Transmission Date: 20111010
  Serious: Yes (Hospitalization, Other)
  Sender: FDA-Public Use
  Company Number: 2010P1002148

PATIENT
  Age: 32 Year
  Sex: Male

DRUGS (1)
  1. CARBAMAZEPINE [Suspect]
     Indication: BIPOLAR DISORDER
     Dosage: 200 MG;BID;PO
     Route: 048
     Dates: start: 20090107, end: 20090217

REACTIONS (36)
  - SCARLET FEVER [None]
  - ORAL HERPES [None]
  - HEPATIC NECROSIS [None]
  - DRUG HYPERSENSITIVITY [None]
  - DYSPHAGIA [None]
  - CONSTIPATION [None]
  - RASH GENERALISED [None]
  - OROPHARYNGEAL PAIN [None]
  - ALOPECIA [None]
  - MULTIPLE INJURIES [None]
  - EMOTIONAL DISTRESS [None]
  - ALANINE AMINOTRANSFERASE INCREASED [None]
  - ASPARTATE AMINOTRANSFERASE INCREASED [None]
  - LICHENIFICATION [None]
  - ANAEMIA [None]
  - LYMPHADENOPATHY [None]
  - URTICARIA [None]
  - SCAR [None]
  - OEDEMA MUCOSAL [None]
  - RASH PUSTULAR [None]
  - HEPATITIS ACUTE [None]
  - DERMATITIS CONTACT [None]
  - PIGMENTATION DISORDER [None]
  - TOXIC EPIDERMAL NECROLYSIS [None]
  - ACTIVITIES OF DAILY LIVING IMPAIRED [None]
  - CHILLS [None]
  - NAUSEA [None]
  - MIGRAINE [None]
  - SKIN EXFOLIATION [None]
  - ANHEDONIA [None]
  - ANXIETY [None]
  - DIZZINESS [None]
  - STEVENS-JOHNSON SYNDROME [None]
  - PYREXIA [None]
  - ONYCHOMADESIS [None]
  - THERMAL BURN [None]
